FAERS Safety Report 20109629 (Version 1)
Quarter: 2021Q4

REPORT INFORMATION
  Report Type: Spontaneous
  Country: US (occurrence: US)
  Receive Date: 20211124
  Receipt Date: 20211124
  Transmission Date: 20220304
  Serious: Yes (Other)
  Sender: FDA-Public Use
  Company Number: US-PFIZER INC-202101563787

PATIENT
  Age: 21 Year
  Sex: Female

DRUGS (2)
  1. MISOPROSTOL [Suspect]
     Active Substance: MISOPROSTOL
     Indication: Labour induction
     Dosage: 25 UG (PER DOSE AT 8:37PM)
     Route: 067
  2. MISOPROSTOL [Suspect]
     Active Substance: MISOPROSTOL
     Dosage: 25 UG (PER DOSE AT 12:38AM)
     Route: 067

REACTIONS (2)
  - Acute pulmonary oedema [Recovered/Resolved]
  - Product use in unapproved indication [Unknown]
